FAERS Safety Report 15283079 (Version 2)
Quarter: 2018Q3

REPORT INFORMATION
  Report Type: Report from Study
  Country: DE (occurrence: DE)
  Receive Date: 20180816
  Receipt Date: 20180912
  Transmission Date: 20181010
  Serious: Yes (Other)
  Sender: FDA-Public Use
  Company Number: DE-ROCHE-2167053

PATIENT

DRUGS (11)
  1. PREDNISOLONE. [Suspect]
     Active Substance: PREDNISOLONE
     Indication: IMMUNE THROMBOCYTOPENIC PURPURA
     Route: 065
  2. ROMIPLOSTIM [Suspect]
     Active Substance: ROMIPLOSTIM
     Indication: IMMUNE THROMBOCYTOPENIC PURPURA
     Route: 065
  3. CYCLOPHOSPHAMIDE. [Suspect]
     Active Substance: CYCLOPHOSPHAMIDE
     Indication: IMMUNE THROMBOCYTOPENIC PURPURA
     Dosage: 1+/?2 MG/KG/DAY
     Route: 048
  4. IVIG [Suspect]
     Active Substance: HUMAN IMMUNOGLOBULIN G
     Indication: IMMUNE THROMBOCYTOPENIC PURPURA
     Route: 042
  5. MYCOPHENOLATE MOFETIL. [Suspect]
     Active Substance: MYCOPHENOLATE MOFETIL
     Indication: IMMUNE THROMBOCYTOPENIC PURPURA
     Dosage: 1000+/?2000 MG/DAY
     Route: 065
  6. CYCLOPHOSPHAMIDE. [Suspect]
     Active Substance: CYCLOPHOSPHAMIDE
     Dosage: 0.3 +/?1 G/M2
     Route: 042
  7. ELTROMBOPAG [Suspect]
     Active Substance: ELTROMBOPAG
     Indication: IMMUNE THROMBOCYTOPENIC PURPURA
     Route: 065
  8. RHO(D) IMMUNE GLOBULIN [Suspect]
     Active Substance: HUMAN RHO(D) IMMUNE GLOBULIN
     Indication: IMMUNE THROMBOCYTOPENIC PURPURA
     Route: 065
  9. AZATHIOPRINE. [Suspect]
     Active Substance: AZATHIOPRINE
     Indication: IMMUNE THROMBOCYTOPENIC PURPURA
     Route: 065
  10. CICLOSPORIN A [Suspect]
     Active Substance: CYCLOSPORINE
     Indication: IMMUNE THROMBOCYTOPENIC PURPURA
     Route: 065
  11. DEXAMETHASONE. [Suspect]
     Active Substance: DEXAMETHASONE
     Indication: IMMUNE THROMBOCYTOPENIC PURPURA
     Dosage: IN CYCLES OF 14?28 DAYS
     Route: 065

REACTIONS (43)
  - Deafness [Unknown]
  - Oral herpes [Unknown]
  - Migraine [Unknown]
  - Insomnia [Unknown]
  - Nausea [Unknown]
  - Transaminases increased [Unknown]
  - Alopecia [Unknown]
  - Basal ganglia infarction [Unknown]
  - Cerebrovascular accident [Unknown]
  - Vasculitis [Unknown]
  - Diarrhoea [Unknown]
  - Fatigue [Unknown]
  - Macular degeneration [Unknown]
  - Paraesthesia [Unknown]
  - Hypersensitivity [Unknown]
  - Hypotension [Unknown]
  - Visual field defect [Unknown]
  - Abdominal pain upper [Unknown]
  - Rash [Unknown]
  - Tachycardia [Unknown]
  - Anxiety [Unknown]
  - Back pain [Unknown]
  - Visual impairment [Unknown]
  - Dizziness [Unknown]
  - Pruritus [Unknown]
  - Depression [Unknown]
  - Headache [Unknown]
  - Weight increased [Unknown]
  - Leukopenia [Unknown]
  - Arthralgia [Unknown]
  - Hypertension [Unknown]
  - Constipation [Unknown]
  - Dyspnoea [Unknown]
  - Cushing^s syndrome [Unknown]
  - Agitation [Unknown]
  - Pyrexia [Unknown]
  - Cough [Unknown]
  - Palpitations [Unknown]
  - Vomiting [Unknown]
  - Myalgia [Unknown]
  - Night sweats [Unknown]
  - Muscle spasms [Unknown]
  - Diabetes mellitus [Unknown]
